FAERS Safety Report 18488810 (Version 2)
Quarter: 2021Q3

REPORT INFORMATION
  Report Type: Report from Study
  Country: US (occurrence: US)
  Receive Date: 20201111
  Receipt Date: 20210708
  Transmission Date: 20211014
  Serious: No
  Sender: FDA-Public Use
  Company Number: US-JNJFOC-20201034508

PATIENT
  Age: 52 Year
  Sex: Female
  Weight: 37.23 kg

DRUGS (4)
  1. STELARA [Suspect]
     Active Substance: USTEKINUMAB
  2. WELCHOL [Concomitant]
     Active Substance: COLESEVELAM HYDROCHLORIDE
  3. METHOTREXATE. [Concomitant]
     Active Substance: METHOTREXATE
  4. STELARA [Suspect]
     Active Substance: USTEKINUMAB
     Indication: CROHN^S DISEASE
     Dosage: 90.00 MG/ML
     Route: 058
     Dates: start: 201909

REACTIONS (2)
  - Needle issue [Unknown]
  - Product dose omission issue [Unknown]

NARRATIVE: CASE EVENT DATE: 20201018
